FAERS Safety Report 22000405 (Version 2)
Quarter: 2023Q2

REPORT INFORMATION
  Report Type: Spontaneous
  Country: US (occurrence: None)
  Receive Date: 20230216
  Receipt Date: 20230425
  Transmission Date: 20230721
  Serious: No
  Sender: FDA-Public Use
  Company Number: 2023A029384

PATIENT
  Sex: Female
  Weight: 68 kg

DRUGS (1)
  1. SYMBICORT [Suspect]
     Active Substance: BUDESONIDE\FORMOTEROL FUMARATE DIHYDRATE
     Indication: Bronchitis
     Dosage: 160/4.5 MCG, 2 PUFFS 2 TIMES A DAY
     Route: 055
     Dates: start: 20230126

REACTIONS (7)
  - Anxiety [Unknown]
  - Incorrect dose administered [Unknown]
  - Extra dose administered [Unknown]
  - Off label use [Unknown]
  - Wrong technique in product usage process [Unknown]
  - Intentional device misuse [Unknown]
  - Device use issue [Unknown]
